FAERS Safety Report 24879229 (Version 1)
Quarter: 2025Q1

REPORT INFORMATION
  Report Type: Spontaneous
  Country: US (occurrence: None)
  Receive Date: 20250123
  Receipt Date: 20250123
  Transmission Date: 20250408
  Serious: Yes (Hospitalization)
  Sender: FDA-CTU
  Company Number: None

PATIENT
  Sex: Male

DRUGS (3)
  1. OCTREOTIDE [Suspect]
     Active Substance: OCTREOTIDE
     Indication: Gastrointestinal fistula
     Dosage: OTHER STRENGTH : 50MCG/ML;?FREQUENCY : 3 TIMES A DAY;?
     Route: 042
     Dates: start: 202405
  2. OCTREOTIDE 50 1 ML PF SYR [Concomitant]
     Indication: Gastrointestinal fistula
  3. INLYTA [Concomitant]
     Active Substance: AXITINIB
     Indication: Renal cancer

REACTIONS (2)
  - Blood creatinine increased [None]
  - Hypotension [None]
